FAERS Safety Report 9452294 (Version 1)
Quarter: 2013Q3

REPORT INFORMATION
  Report Type: Spontaneous
  Country: US (occurrence: None)
  Receive Date: 20130808
  Receipt Date: 20130808
  Transmission Date: 20140515
  Serious: No
  Sender: FDA-Public Use
  Company Number: None

PATIENT
  Age: 83 Year
  Sex: Female
  Weight: 57.15 kg

DRUGS (2)
  1. CIPROFLOXACIN [Suspect]
     Indication: URINARY TRACT INFECTION
     Dosage: 1 PILL 2/ DAY BY MOUTH
     Route: 048
     Dates: start: 20130723, end: 20130709
  2. VIGAMOX [Suspect]
     Indication: CATARACT OPERATION
     Dosage: VIGAMOX 1 DROP 3/DAY DROP IN (R) EYE
     Dates: start: 201207

REACTIONS (6)
  - Feeling abnormal [None]
  - Mental disorder [None]
  - Abnormal dreams [None]
  - Dizziness [None]
  - Asthenia [None]
  - Eye disorder [None]
